FAERS Safety Report 23992468 (Version 1)
Quarter: 2024Q2

REPORT INFORMATION
  Report Type: Spontaneous
  Country: FR (occurrence: FR)
  Receive Date: 20240620
  Receipt Date: 20240620
  Transmission Date: 20240716
  Serious: Yes (Hospitalization, Other)
  Sender: FDA-Public Use
  Company Number: FR-AFSSAPS-MP2024000956

PATIENT
  Sex: Male

DRUGS (6)
  1. ALFUZOSIN HYDROCHLORIDE [Suspect]
     Active Substance: ALFUZOSIN HYDROCHLORIDE
     Indication: Product used for unknown indication
     Dosage: 10 MILLIGRAM, TOTAL
     Route: 048
     Dates: start: 20240526, end: 20240526
  2. CLOZAPINE [Suspect]
     Active Substance: CLOZAPINE
     Indication: Product used for unknown indication
     Dosage: 3 DOSAGE FORM
     Route: 048
     Dates: start: 20240526, end: 20240526
  3. LEVOMEPROMAZINE [Suspect]
     Active Substance: LEVOMEPROMAZINE
     Indication: Product used for unknown indication
     Dosage: 0.5 DOSAGE FORM
     Route: 048
     Dates: start: 20240526, end: 20240526
  4. TRIHEXYPHENIDYL HYDROCHLORIDE [Suspect]
     Active Substance: TRIHEXYPHENIDYL HYDROCHLORIDE
     Indication: Product used for unknown indication
     Dosage: 1 DOSAGE FORM
     Route: 048
     Dates: start: 20240526, end: 20240526
  5. RISPERDAL [Suspect]
     Active Substance: RISPERIDONE
     Indication: Product used for unknown indication
     Dosage: 1.5 DOSAGE FORM
     Route: 048
     Dates: start: 20240526, end: 20240526
  6. VALIUM [Suspect]
     Active Substance: DIAZEPAM
     Indication: Product administration error
     Dosage: 2 DOSAGE FORM
     Route: 048
     Dates: start: 20240526, end: 20240526

REACTIONS (4)
  - Altered state of consciousness [Recovered/Resolved]
  - Pneumonia aspiration [Recovering/Resolving]
  - Dysphagia [Recovered/Resolved]
  - Wrong product administered [Recovering/Resolving]

NARRATIVE: CASE EVENT DATE: 20240526
